FAERS Safety Report 8229192-3 (Version None)
Quarter: 2012Q1

REPORT INFORMATION
  Report Type: 
  Country: None (occurrence: None)
  Receive Date: 20120322
  Receipt Date: 20120305
  Transmission Date: 20120608
  Serious: Yes (Hospitalization)
  Sender: FDA-Public Use
  Company Number: JP-ROCHE-GNE323673

PATIENT
  Age: 80 Year
  Sex: Male

DRUGS (24)
  1. HEPARIN SODIUM [Suspect]
     Dosage: 14KIU/DAY
     Dates: start: 20110515, end: 20110519
  2. NICARDIPINE HCL [Suspect]
     Dosage: 88MG/DAY
     Dates: start: 20110521, end: 20110521
  3. NICARDIPINE HCL [Suspect]
     Dosage: 96MG/DAY
     Dates: start: 20110520, end: 20110520
  4. POTASSIUM CHLORIDE [Concomitant]
     Dosage: 20MEQ/DAY
     Dates: start: 20110516, end: 20110519
  5. ACTIVASE [Suspect]
     Indication: EMBOLIC STROKE
     Dosage: 33.6 ML, QD
     Route: 042
     Dates: start: 20110512, end: 20110512
  6. NICARDIPINE HCL [Suspect]
     Dosage: 72MG/DAY
     Dates: start: 20110522, end: 20110522
  7. GLYCEOL [Concomitant]
     Dosage: 600MG/DAY
     Dates: start: 20110514, end: 20110523
  8. HEPARIN SODIUM [Suspect]
     Dosage: 12KIU/DAY
     Dates: start: 20110513, end: 20110514
  9. FAMOTIDINE [Concomitant]
     Indication: HYPERTENSION
     Dosage: 20MG/DAY
     Dates: start: 20110512, end: 20110517
  10. FAMOTIDINE [Concomitant]
     Dosage: 40MG/DAY
     Dates: start: 20110518
  11. POTASSIUM CHLORIDE [Concomitant]
     Dosage: 40MEQ/DAY
     Dates: start: 20110520, end: 20110520
  12. HEPARIN SODIUM [Suspect]
     Indication: EMBOLIC STROKE
     Dosage: 10KIU/DAY
     Dates: start: 20110513, end: 20110513
  13. NICARDIPINE HCL [Suspect]
     Indication: HYPERTENSION
     Dosage: 2.86MG/DAY
     Dates: start: 20110512, end: 20110512
  14. GLYCEOL [Concomitant]
     Indication: PRODUCT USED FOR UNKNOWN INDICATION
     Dosage: 400MG/DAY
     Dates: start: 20110513, end: 20110513
  15. NICARDIPINE HCL [Suspect]
     Dosage: 24MG/DAY
     Dates: start: 20110517, end: 20110517
  16. NICARDIPINE HCL [Suspect]
     Dosage: 27.6MG/DAY
     Dates: start: 20110518, end: 20110518
  17. NICARDIPINE HCL [Suspect]
     Dosage: 78.5MG/DAY
     Dates: start: 20110523, end: 20110523
  18. HEPARIN SODIUM [Suspect]
     Dosage: 16KIU/DAY
     Dates: start: 20110519
  19. NICARDIPINE HCL [Suspect]
     Dosage: 56.5MG/DAY
     Dates: start: 20110519, end: 20110519
  20. NICARDIPINE HCL [Suspect]
     Dosage: 2MG/DAY
     Dates: start: 20110516, end: 20110516
  21. NICARDIPINE HCL [Suspect]
     Dosage: 42MG/DAY
     Dates: start: 20110524, end: 20110524
  22. RADICUT [Concomitant]
     Indication: EMBOLIC STROKE
     Dosage: 30 MG, BID
     Dates: start: 20110512, end: 20110525
  23. GLYCEOL [Concomitant]
     Dosage: 400MG/DAY
     Dates: start: 20110524
  24. POTASSIUM CHLORIDE [Concomitant]
     Dosage: 20MEQ/DAY
     Dates: start: 20110521

REACTIONS (3)
  - PNEUMONIA ASPIRATION [None]
  - HAEMORRHAGIC CEREBRAL INFARCTION [None]
  - PHLEBITIS [None]
